FAERS Safety Report 5609537-0 (Version None)
Quarter: 2008Q1

REPORT INFORMATION
  Report Type: 
  Country: None (occurrence: None)
  Receive Date: 20080131
  Receipt Date: 20080125
  Transmission Date: 20080703
  Serious: Yes (Other)
  Sender: FDA-Public Use
  Company Number: IT-BOEHRINGER INGELHEIM GMBH, GERMANY-2008-DE-00502GD

PATIENT

DRUGS (4)
  1. PARACETAMOL [Suspect]
  2. NAPROXEN [Suspect]
  3. PIROXICAM [Suspect]
  4. ANALGESICS [Suspect]

REACTIONS (2)
  - DRUG ABUSE [None]
  - HEADACHE [None]
